FAERS Safety Report 4405346-9 (Version None)
Quarter: 2004Q3

REPORT INFORMATION
  Report Type: 
  Country: None (occurrence: None)
  Receive Date: 20040715
  Receipt Date: 20040629
  Transmission Date: 20050211
  Serious: Yes (Other)
  Sender: FDA-Public Use
  Company Number: DE-2004-027970

PATIENT
  Sex: Female

DRUGS (1)
  1. YASMIN [Suspect]
     Dosage: UNK, UNK; ORAL
     Route: 048
     Dates: start: 20020601, end: 20040601

REACTIONS (6)
  - ALOPECIA [None]
  - CELLULITIS [None]
  - HYPERTENSION [None]
  - MENIERE'S DISEASE [None]
  - POLYCYSTIC OVARIES [None]
  - WEIGHT INCREASED [None]
